FAERS Safety Report 17253104 (Version 3)
Quarter: 2020Q1

REPORT INFORMATION
  Report Type: Report from Study
  Country: US (occurrence: US)
  Receive Date: 20200109
  Receipt Date: 20200210
  Transmission Date: 20200409
  Serious: Yes (Death)
  Sender: FDA-Public Use
  Company Number: NVSC2020US003201

PATIENT
  Sex: Male

DRUGS (1)
  1. TREPROSTINIL. [Suspect]
     Active Substance: TREPROSTINIL
     Indication: PULMONARY ARTERIAL HYPERTENSION
     Dosage: 35 NG, CONT
     Route: 042
     Dates: start: 20191218

REACTIONS (3)
  - Fluid retention [Unknown]
  - Death [Fatal]
  - Dyspnoea [Unknown]
